FAERS Safety Report 20010718 (Version 4)
Quarter: 2022Q1

REPORT INFORMATION
  Report Type: Spontaneous
  Country: US (occurrence: US)
  Receive Date: 20211028
  Receipt Date: 20220222
  Transmission Date: 20220423
  Serious: Yes (Hospitalization, Other)
  Sender: FDA-Public Use
  Company Number: US-PFIZER INC-202101375153

PATIENT
  Age: 48 Year
  Sex: Female

DRUGS (1)
  1. XELJANZ XR [Suspect]
     Active Substance: TOFACITINIB CITRATE
     Indication: Colitis ulcerative
     Dosage: 11 MG, 1X/DAY
     Route: 048
     Dates: start: 202109

REACTIONS (9)
  - Anal fistula [Unknown]
  - Rectal haemorrhage [Unknown]
  - Pouchitis [Unknown]
  - Off label use [Unknown]
  - Discouragement [Unknown]
  - Depressed mood [Unknown]
  - Back pain [Not Recovered/Not Resolved]
  - COVID-19 [Unknown]
  - Rectal spasm [Unknown]

NARRATIVE: CASE EVENT DATE: 20210101
